FAERS Safety Report 6908589-5 (Version None)
Quarter: 2010Q3

REPORT INFORMATION
  Report Type: 
  Country: None (occurrence: None)
  Receive Date: 20100805
  Receipt Date: 20100802
  Transmission Date: 20110219
  Serious: Yes (Hospitalization)
  Sender: FDA-Public Use
  Company Number: SE-MERCK-1008SWE00002

PATIENT
  Age: 71 Year
  Sex: Male

DRUGS (10)
  1. ZOCOR [Suspect]
     Route: 048
     Dates: start: 20070801
  2. CORDARONE [Suspect]
     Indication: VENTRICULAR TACHYCARDIA
     Route: 048
     Dates: start: 20090401, end: 20091112
  3. OMEPRAZOLE [Concomitant]
     Route: 065
  4. METOPROLOL [Concomitant]
     Route: 065
  5. ZOPICLONE [Concomitant]
     Route: 065
  6. ALVEDON [Concomitant]
     Route: 065
  7. WARAN [Concomitant]
     Route: 065
  8. FURIX [Concomitant]
     Route: 065
  9. SPIRONOLACTONE [Concomitant]
     Route: 065
  10. ALLOPURINOL [Concomitant]
     Route: 065

REACTIONS (2)
  - DRUG INTERACTION [None]
  - RHABDOMYOLYSIS [None]
